FAERS Safety Report 8281456-3 (Version None)
Quarter: 2012Q2

REPORT INFORMATION
  Report Type: 
  Country: None (occurrence: None)
  Receive Date: 20120410
  Receipt Date: 20120326
  Transmission Date: 20120825
  Serious: Yes (Other)
  Sender: FDA-Public Use
  Company Number: 2011MA008087

PATIENT
  Age: 55 Year
  Sex: Female

DRUGS (3)
  1. EPIRUBICIN HYDROCHLORIDE [Suspect]
     Indication: CHEMOTHERAPY
     Dosage: 150 MG;1X;IV
     Route: 042
     Dates: start: 20081003
  2. CYCLOPHOSPHAMIDE [Suspect]
     Indication: CHEMOTHERAPY
     Dosage: 1000 MG;1X;
     Dates: start: 20081003
  3. TAXOTERE [Suspect]
     Indication: CHEMOTHERAPY
     Dosage: 170 MG;IV
     Route: 042
     Dates: start: 20081205

REACTIONS (3)
  - ASTHENIA [None]
  - ALOPECIA [None]
  - NAIL DISORDER [None]
